FAERS Safety Report 9993135 (Version 1)
Quarter: 2014Q1

REPORT INFORMATION
  Report Type: Spontaneous
  Country: US (occurrence: US)
  Receive Date: 20140310
  Receipt Date: 20140310
  Transmission Date: 20141002
  Serious: No
  Sender: FDA-Public Use
  Company Number: US-ABBVIE-14P-163-1200301-00

PATIENT
  Age: 45 Year
  Sex: Female
  Weight: 86.26 kg

DRUGS (8)
  1. LUPRON DEPOT [Suspect]
     Indication: ENDOMETRIOSIS
     Dates: start: 20130501
  2. LUPRON DEPOT [Suspect]
     Indication: UTERINE LEIOMYOMA
  3. LUPRON DEPOT [Suspect]
     Indication: ENDOMETRIOSIS
     Dates: start: 201109, end: 201110
  4. LUPRON DEPOT [Suspect]
     Indication: UTERINE LEIOMYOMA
  5. AMLODIPINE [Concomitant]
     Indication: HYPERTENSION
  6. TYLENOL [Concomitant]
     Indication: PAIN
  7. SERTRALINE [Concomitant]
     Indication: DEPRESSION
  8. OSTEO BI-FLEX [Concomitant]
     Indication: ARTHROPATHY

REACTIONS (4)
  - Abdominal pain upper [Recovered/Resolved]
  - Nausea [Not Recovered/Not Resolved]
  - Headache [Recovered/Resolved]
  - Hot flush [Not Recovered/Not Resolved]
